FAERS Safety Report 6405175-0 (Version None)
Quarter: 2009Q4

REPORT INFORMATION
  Report Type: 
  Country: None (occurrence: None)
  Receive Date: 20091013
  Receipt Date: 20090925
  Transmission Date: 20100525
  Serious: Yes (Other)
  Sender: FDA-Public Use
  Company Number: 002799

PATIENT
  Age: 77 Year
  Sex: Male
  Weight: 69.5 kg

DRUGS (12)
  1. MACUGEN [Suspect]
     Indication: MACULAR DEGENERATION
     Dosage: 0.3MG INTRAOCULAR
     Route: 031
     Dates: start: 20081204, end: 20090108
  2. GATIFLOXACIN [Concomitant]
  3. ISODINE (POVIDONE-IODINE) [Concomitant]
  4. ALLOPURINOL [Concomitant]
  5. CANDESARTAN CILEXETIL [Concomitant]
  6. ISOSORBIDE DINITRATE [Concomitant]
  7. CONIEL (BENIDIPINE HYDROCHLORIDE) [Concomitant]
  8. PRAVASTATIN [Concomitant]
  9. NATRIX (INDAPAMIDE) [Concomitant]
  10. DILTIAZEM HCL [Concomitant]
  11. ASPIRIN [Concomitant]
  12. XYLOCAINE [Concomitant]

REACTIONS (1)
  - INTRAOCULAR PRESSURE INCREASED [None]
